FAERS Safety Report 11821690 (Version 1)
Quarter: 2015Q4

REPORT INFORMATION
  Report Type: Spontaneous
  Country: US (occurrence: US)
  Receive Date: 20151210
  Receipt Date: 20151210
  Transmission Date: 20160305
  Serious: No
  Sender: FDA-Public Use
  Company Number: US-JNJFOC-20150500480

PATIENT
  Age: 82 Year
  Sex: Male

DRUGS (27)
  1. IMBRUVICA [Suspect]
     Active Substance: IBRUTINIB
     Indication: CHRONIC LYMPHOCYTIC LEUKAEMIA
     Route: 048
     Dates: start: 20150116
  2. OMEGA 3 [Concomitant]
     Active Substance: OMEGA-3 FATTY ACIDS
  3. BUMEX [Concomitant]
     Active Substance: BUMETANIDE
  4. HCTZ [Concomitant]
     Active Substance: HYDROCHLOROTHIAZIDE
  5. ZOCOR [Concomitant]
     Active Substance: SIMVASTATIN
  6. ALLEGRA [Concomitant]
     Active Substance: FEXOFENADINE HYDROCHLORIDE
  7. DIABETA [Concomitant]
     Active Substance: GLYBURIDE
  8. GERITOL [Concomitant]
     Active Substance: MINERALS\VITAMINS
  9. FISH OIL [Concomitant]
     Active Substance: FISH OIL
  10. SPIRIVA [Concomitant]
     Active Substance: TIOTROPIUM BROMIDE MONOHYDRATE
  11. HYDROXYZINE [Concomitant]
     Active Substance: HYDROXYZINE\HYDROXYZINE HYDROCHLORIDE
  12. VITAMIN C [Concomitant]
     Active Substance: ASCORBIC ACID
  13. COREG [Concomitant]
     Active Substance: CARVEDILOL
  14. LISINOPRIL. [Concomitant]
     Active Substance: LISINOPRIL
  15. ASCORBIC ACID. [Concomitant]
     Active Substance: ASCORBIC ACID
  16. ASA [Concomitant]
     Active Substance: ASPIRIN
  17. MVI [Concomitant]
     Active Substance: VITAMINS
  18. LUMIGAN [Concomitant]
     Active Substance: BIMATOPROST
  19. ATIVAN [Concomitant]
     Active Substance: LORAZEPAM
  20. DIAMOX SEQUELS [Concomitant]
     Active Substance: ACETAZOLAMIDE
  21. NORVASC [Concomitant]
     Active Substance: AMLODIPINE BESYLATE
  22. GLYBURIDE. [Concomitant]
     Active Substance: GLYBURIDE
  23. LORAZEPAM. [Concomitant]
     Active Substance: LORAZEPAM
  24. FORTESTA [Concomitant]
     Active Substance: TESTOSTERONE
  25. TAMSULOSIN [Concomitant]
     Active Substance: TAMSULOSIN
  26. FINASTERIDE. [Concomitant]
     Active Substance: FINASTERIDE
  27. KLOR-CON [Concomitant]
     Active Substance: POTASSIUM CHLORIDE

REACTIONS (2)
  - Decreased appetite [Recovered/Resolved]
  - Somnolence [Recovered/Resolved]

NARRATIVE: CASE EVENT DATE: 2015
